FAERS Safety Report 9314744 (Version 6)
Quarter: 2013Q3

REPORT INFORMATION
  Report Type: Report from Study
  Country: US (occurrence: US)
  Receive Date: 20130529
  Receipt Date: 20130724
  Transmission Date: 20140515
  Serious: Yes (Other)
  Sender: FDA-Public Use
  Company Number: US-VERTEX PHARMACEUTICALS INC-2013-006464

PATIENT
  Age: 61 Year
  Sex: Male
  Weight: 112 kg

DRUGS (5)
  1. VX-950 (TELAPREVIR) [Suspect]
     Indication: HEPATITIS C
     Dosage: 750 MG, TID
     Route: 048
     Dates: start: 20130510, end: 20130715
  2. RIBAVIRIN [Suspect]
     Indication: HEPATITIS C
     Dosage: 600 MG IN AM AND 400 MG IN PM
     Route: 048
     Dates: start: 20130510
  3. RIBAVIRIN [Suspect]
     Dosage: 600 MG, BID
     Route: 048
     Dates: end: 20130715
  4. PEGASYS [Suspect]
     Indication: HEPATITIS C
     Dosage: 180 ?G, QW
     Route: 058
     Dates: start: 20130510, end: 20130614
  5. PEGASYS [Suspect]
     Dosage: 90 ?G, QW
     Route: 058
     Dates: start: 20130621, end: 20130715

REACTIONS (9)
  - Rash generalised [Not Recovered/Not Resolved]
  - Skin ulcer [Not Recovered/Not Resolved]
  - Weight decreased [Not Recovered/Not Resolved]
  - Scab [Not Recovered/Not Resolved]
  - Fatigue [Not Recovered/Not Resolved]
  - Platelet count decreased [Not Recovered/Not Resolved]
  - Anorectal discomfort [Recovered/Resolved]
  - Haemorrhoids [Recovered/Resolved]
  - Anal pruritus [Recovered/Resolved]
